FAERS Safety Report 10079373 (Version 1)
Quarter: 2014Q2

REPORT INFORMATION
  Report Type: Spontaneous
  Country: FR (occurrence: FR)
  Receive Date: 20140415
  Receipt Date: 20140415
  Transmission Date: 20141212
  Serious: Yes (Hospitalization)
  Sender: FDA-Public Use
  Company Number: PHHY2014FR044823

PATIENT
  Age: 66 Year
  Sex: Male

DRUGS (6)
  1. ZOMETA [Suspect]
     Indication: PLASMA CELL MYELOMA RECURRENT
     Dosage: UNK UKN, UNK
     Route: 042
     Dates: start: 201304, end: 201309
  2. MELPHALAN [Suspect]
     Dosage: 140 MG/M2, UNK
     Route: 042
     Dates: start: 20140204, end: 20140204
  3. TENORMINE [Concomitant]
     Dosage: 50 MG, UNK
  4. INEXIUM//ESOMEPRAZOLE MAGNESIUM [Concomitant]
     Dosage: 40 MG, UNK
  5. TRAMADOL [Concomitant]
     Dosage: 50 MG, UNK
  6. LYSINE ACETYLSALICYLATE [Concomitant]
     Dosage: 300 MG, UNK

REACTIONS (1)
  - Osteonecrosis [Not Recovered/Not Resolved]
